FAERS Safety Report 18448245 (Version 2)
Quarter: 2020Q4

REPORT INFORMATION
  Report Type: Report from Study
  Country: None (occurrence: CH)
  Receive Date: 20201101
  Receipt Date: 20201126
  Transmission Date: 20210114
  Serious: Yes (Hospitalization)
  Sender: FDA-Public Use
  Company Number: CH-ABBVIE-20K-151-3628939-00

PATIENT
  Age: 81 Year
  Sex: Male

DRUGS (5)
  1. DUODOPA [Suspect]
     Active Substance: CARBIDOPA\LEVODOPA
     Indication: PARKINSON^S DISEASE
     Route: 050
     Dates: start: 20200210, end: 20200211
  2. DUODOPA [Suspect]
     Active Substance: CARBIDOPA\LEVODOPA
     Dosage: MD: 5.5 ML, CRD: 2.8 ML/H, CRN: 2.5 ML/H, ED: 1.5 ML,24 H THERAPY
     Route: 050
     Dates: start: 202010, end: 20201028
  3. DUODOPA [Suspect]
     Active Substance: CARBIDOPA\LEVODOPA
     Dosage: MD: 2.5 ML, CRD: 3.7 ML/H, CRN: 2.5 ML/H, ED: 1.5 ML,24 H THERAPY
     Route: 050
     Dates: start: 20200211, end: 20200214
  4. DUODOPA [Suspect]
     Active Substance: CARBIDOPA\LEVODOPA
     Dosage: MD: 5.5 ML, CRD: 3 ML/H, CRN: 2.5 ML/H, ED: 1.5 ML,24 H THERAPY
     Route: 050
     Dates: start: 20201028
  5. DUODOPA [Suspect]
     Active Substance: CARBIDOPA\LEVODOPA
     Dosage: MD: 5.5 ML, CRD: 3.7 ML/H, CRN: 2.5 ML/H, ED: 1.5 ML, 24 H THERAPY
     Route: 050
     Dates: start: 20201014, end: 202010

REACTIONS (3)
  - Cerebrovascular accident [Unknown]
  - General physical health deterioration [Not Recovered/Not Resolved]
  - Device issue [Recovered/Resolved]

NARRATIVE: CASE EVENT DATE: 20201028
